FAERS Safety Report 4556554-8 (Version None)
Quarter: 2005Q1

REPORT INFORMATION
  Report Type: 
  Country: None (occurrence: None)
  Receive Date: 20050118
  Receipt Date: 20050107
  Transmission Date: 20050727
  Serious: Yes (Hospitalization)
  Sender: FDA-Public Use
  Company Number: 2003020418

PATIENT
  Age: 69 Year
  Sex: Male
  Weight: 98.6 kg

DRUGS (8)
  1. ATORVASTATIN (ATORVASTATIN) [Suspect]
     Indication: CORONARY ARTERY DISEASE
     Dosage: SEE IMAGE
     Route: 048
     Dates: start: 19980903, end: 19981101
  2. ATORVASTATIN (ATORVASTATIN) [Suspect]
     Indication: CORONARY ARTERY DISEASE
     Dosage: SEE IMAGE
     Route: 048
     Dates: start: 19981102
  3. ATENOLOL [Concomitant]
  4. ASPIRIN [Concomitant]
  5. LEVOTHYROXINE SODIUM [Concomitant]
  6. B-KOMPLEX ^LECIVA^ (PYRIDOXINE HYDROCHLORIDE, THIAMINE HYDROCHLORIDE, [Concomitant]
  7. ASCORBIC ACID [Concomitant]
  8. CALCIUM (CALCIUM) [Concomitant]

REACTIONS (3)
  - CHOLANGITIS [None]
  - CHOLECYSTITIS [None]
  - CHOLELITHIASIS [None]
